FAERS Safety Report 17095254 (Version 1)
Quarter: 2019Q4

REPORT INFORMATION
  Report Type: Spontaneous
  Country: US (occurrence: US)
  Receive Date: 20191104
  Receipt Date: 20191104
  Transmission Date: 20200122
  Serious: No
  Sender: FDA-Public Use
  Company Number: None

PATIENT
  Age: 39 Year
  Sex: Female

DRUGS (1)
  1. IBRANCE [Suspect]
     Active Substance: PALBOCICLIB
     Indication: BREAST CANCER
     Dosage: ?          OTHER FREQUENCY:21 DAYS ON/7 DAYS ;?
     Route: 048

REACTIONS (3)
  - Fatigue [None]
  - Dyspnoea [None]
  - Visual impairment [None]

NARRATIVE: CASE EVENT DATE: 201711
